FAERS Safety Report 9440074 (Version 3)
Quarter: 2014Q1

REPORT INFORMATION
  Report Type: Report from Study
  Country: JP (occurrence: JP)
  Receive Date: 20130805
  Receipt Date: 20140220
  Transmission Date: 20141002
  Serious: Yes (Death, Hospitalization, Other)
  Sender: FDA-Public Use
  Company Number: JP-OTSUKA-JP-2013-12729

PATIENT
  Age: 85 Year
  Sex: Male

DRUGS (5)
  1. SAMSCA [Suspect]
     Indication: FLUID RETENTION
     Dosage: 15 MG MILLIGRAM(S), QAM
     Route: 048
     Dates: start: 20130507, end: 20130510
  2. LASIX [Concomitant]
     Indication: CARDIAC FAILURE
     Dosage: 20 MG MILLIGRAM(S), DAILY DOSE
     Route: 042
     Dates: start: 20130507, end: 20130511
  3. PRECEDEX [Concomitant]
     Indication: SEDATION
     Dosage: 200 MCG, DAILY DOSE
     Route: 042
     Dates: start: 20130507, end: 20130511
  4. INOVAN [Concomitant]
     Indication: CARDIAC FAILURE
     Dosage: 50 ML MILLILITRE(S), DAILY DOSE
     Route: 041
     Dates: start: 20130507, end: 20130511
  5. HERBESSER [Concomitant]
     Indication: CARDIAC FAILURE
     Dosage: 50 MG MILLIGRAM(S), DAILY DOSE
     Route: 042
     Dates: start: 20130507, end: 20130511

REACTIONS (3)
  - Hypernatraemia [Fatal]
  - Multi-organ failure [Fatal]
  - Hepatic function abnormal [Recovered/Resolved]
